FAERS Safety Report 13795042 (Version 1)
Quarter: 2017Q3

REPORT INFORMATION
  Report Type: Spontaneous
  Country: GB (occurrence: GB)
  Receive Date: 20170726
  Receipt Date: 20170726
  Transmission Date: 20171127
  Serious: Yes (Disabling, Other)
  Sender: FDA-Public Use
  Company Number: GB-MYLANLABS-2017M1043097

PATIENT

DRUGS (4)
  1. VALERIAN [Concomitant]
     Active Substance: VALERIAN
  2. LYRICA [Concomitant]
     Active Substance: PREGABALIN
  3. CLOMIPRAMINE [Suspect]
     Active Substance: CLOMIPRAMINE
     Indication: OBSESSIVE-COMPULSIVE DISORDER
     Dosage: 200
     Route: 048
     Dates: start: 2013, end: 20160201
  4. SEROQUEL [Suspect]
     Active Substance: QUETIAPINE FUMARATE
     Indication: OBSESSIVE-COMPULSIVE DISORDER
     Dosage: 100 + 75 NORMAL RELEASE
     Route: 048
     Dates: start: 2014, end: 20160201

REACTIONS (8)
  - Pulse abnormal [Not Recovered/Not Resolved]
  - Dyskinesia [Not Recovered/Not Resolved]
  - Arrhythmia [Not Recovered/Not Resolved]
  - Muscle rigidity [Not Recovered/Not Resolved]
  - Paralysis [Not Recovered/Not Resolved]
  - Secretion discharge [Unknown]
  - Respiratory disorder [Not Recovered/Not Resolved]
  - Blood creatine phosphokinase abnormal [Unknown]

NARRATIVE: CASE EVENT DATE: 20151201
